FAERS Safety Report 12118127 (Version 2)
Quarter: 2018Q1

REPORT INFORMATION
  Report Type: Spontaneous
  Country: MY (occurrence: MY)
  Receive Date: 20160226
  Receipt Date: 20180219
  Transmission Date: 20180508
  Serious: Yes (Other)
  Sender: FDA-Public Use
  Company Number: MY-ACCORD-038050

PATIENT
  Age: 33 Year
  Sex: Female

DRUGS (6)
  1. ASCORBIC ACID/ASCORBYL PALMITATE/SODIUM ASCORBATE [Concomitant]
  2. FENOFIBRATE. [Concomitant]
     Active Substance: FENOFIBRATE
  3. METFORMIN [Concomitant]
     Active Substance: METFORMIN HYDROCHLORIDE
     Dosage: METFORMIN XR 1500 MG EVERY NIGHT
  4. URAL [Concomitant]
     Dosage: SACHETS
  5. ALLOPURINOL. [Suspect]
     Active Substance: ALLOPURINOL
     Indication: GOUTY ARTHRITIS
     Dosage: STARTED ON ALLOPURINOL 150 MG EVERY NIGHT, SUBSEQUENT DOSE INCREMENT TO 300 MG EVERY NIGHT.
  6. GLICLAZIDE [Concomitant]
     Active Substance: GLICLAZIDE
     Dosage: GLICLAZIDE MR 90 MG ONCE DAILY

REACTIONS (1)
  - Maculopathy [Recovering/Resolving]
